FAERS Safety Report 12476695 (Version 3)
Quarter: 2016Q3

REPORT INFORMATION
  Report Type: Spontaneous
  Country: FR (occurrence: FR)
  Receive Date: 20160617
  Receipt Date: 20160715
  Transmission Date: 20161109
  Serious: Yes (Death)
  Sender: FDA-Public Use
  Company Number: FR-PFIZER INC-2016292564

PATIENT
  Age: 82 Year
  Sex: Female

DRUGS (10)
  1. PLAVIX [Interacting]
     Active Substance: CLOPIDOGREL BISULFATE
     Indication: ISCHAEMIC CARDIOMYOPATHY
     Dosage: 75 MG, DAILY
     Route: 048
  2. LOVENOX [Concomitant]
     Active Substance: ENOXAPARIN SODIUM
     Dosage: 4000 IU, 1X/DAY
     Route: 058
  3. DIAMOX /00016901/ [Suspect]
     Active Substance: ACETAZOLAMIDE
     Indication: CARDIAC FAILURE
     Dosage: 250 MG, 1X/DAY
     Route: 048
     Dates: start: 201506
  4. IKOREL [Concomitant]
     Active Substance: NICORANDIL
     Dosage: 20 MG, 1X/DAY
     Route: 048
  5. FUMAFER [Concomitant]
     Active Substance: FERROUS FUMARATE
     Route: 048
  6. ZAMUDOL [Concomitant]
     Active Substance: TRAMADOL HYDROCHLORIDE
     Dosage: 50 MG, 2X/DAY
     Route: 048
  7. INEXIUM /01479302/ [Interacting]
     Active Substance: ESOMEPRAZOLE MAGNESIUM
     Dosage: 40 MG, DAILY
     Route: 048
  8. ZOLPIDEM [Concomitant]
     Active Substance: ZOLPIDEM\ZOLPIDEM TARTRATE
     Dosage: 10 MG, DAILY
     Route: 048
  9. ALDACTONE [Suspect]
     Active Substance: SPIRONOLACTONE
     Indication: CARDIAC FAILURE
     Dosage: 25 MG, DAILY
     Route: 048
     Dates: start: 201506
  10. METFORMIN HCL [Suspect]
     Active Substance: METFORMIN HYDROCHLORIDE
     Indication: TYPE 2 DIABETES MELLITUS
     Dosage: 1000 MG, 1X/DAY

REACTIONS (2)
  - Metabolic acidosis [Fatal]
  - Drug interaction [Fatal]

NARRATIVE: CASE EVENT DATE: 20150625
